FAERS Safety Report 7457119-0 (Version None)
Quarter: 2011Q2

REPORT INFORMATION
  Report Type: 
  Country: None (occurrence: None)
  Receive Date: 20110504
  Receipt Date: 20110421
  Transmission Date: 20111010
  Serious: Yes (Other)
  Sender: FDA-Public Use
  Company Number: US-ELI_LILLY_AND_COMPANY-US201003005140

PATIENT
  Sex: Female

DRUGS (11)
  1. FORTEO [Suspect]
     Dosage: 20 UG, QD
     Dates: end: 20110131
  2. VEMAS S [Concomitant]
  3. VITAMIN D [Concomitant]
     Dosage: 50000 U, WEEKLY (1/W)
  4. VITAMIN C [Concomitant]
  5. TOPIRAMATE [Concomitant]
     Dosage: 100 MG, BID
  6. ADDERALL 10 [Concomitant]
     Dosage: 10 MG, BID
  7. FORTEO [Suspect]
     Indication: OSTEOPOROSIS
     Dosage: 20 UG, DAILY (1/D)
     Route: 058
     Dates: start: 20101101
  8. FORTEO [Suspect]
     Dosage: 20 UG, DAILY (1/D)
     Route: 058
  9. FORTEO [Suspect]
     Dosage: 20 UG, QD
  10. FIORICET [Concomitant]
     Indication: MIGRAINE
     Dosage: UNK, PRN
  11. CALCIUM [Concomitant]
     Dosage: 600 MG, BID

REACTIONS (25)
  - NAUSEA [None]
  - SLEEP DISORDER DUE TO A GENERAL MEDICAL CONDITION [None]
  - STAPHYLOMA [None]
  - BONE DENSITY DECREASED [None]
  - RASH [None]
  - DIZZINESS [None]
  - HYPOTENSION [None]
  - FAT TISSUE INCREASED [None]
  - BLINDNESS [None]
  - ATROPHY OF GLOBE [None]
  - HEADACHE [None]
  - WEIGHT INCREASED [None]
  - MYOPIA [None]
  - OFF LABEL USE [None]
  - BODY TEMPERATURE DECREASED [None]
  - INSOMNIA [None]
  - MIGRAINE [None]
  - MEMORY IMPAIRMENT [None]
  - ABDOMINAL DISCOMFORT [None]
  - TOOTH FRACTURE [None]
  - VISION BLURRED [None]
  - CHEST PAIN [None]
  - PAIN [None]
  - HYPERHIDROSIS [None]
  - BREAST ENLARGEMENT [None]
